FAERS Safety Report 6414827-8 (Version None)
Quarter: 2009Q4

REPORT INFORMATION
  Report Type: 
  Country: None (occurrence: None)
  Receive Date: 20091026
  Receipt Date: 20091026
  Transmission Date: 20100525
  Serious: Yes (Life-Threatening)
  Sender: FDA-Public Use
  Company Number: None

PATIENT
  Age: 52 Year
  Sex: Female
  Weight: 74.8435 kg

DRUGS (1)
  1. AVELOX [Suspect]
     Indication: EAR INFECTION
     Dosage: 1 DAILY
     Dates: start: 20091020, end: 20091028

REACTIONS (18)
  - BACK PAIN [None]
  - CARDIAC DISORDER [None]
  - CARDIAC FLUTTER [None]
  - COUGH [None]
  - DIZZINESS [None]
  - EAR DISORDER [None]
  - FATIGUE [None]
  - FEELING ABNORMAL [None]
  - HEADACHE [None]
  - IMPAIRED WORK ABILITY [None]
  - JAW DISORDER [None]
  - MALAISE [None]
  - OEDEMA PERIPHERAL [None]
  - PAIN IN EXTREMITY [None]
  - PAIN IN JAW [None]
  - PRURITUS [None]
  - SINUS HEADACHE [None]
  - TREMOR [None]
